FAERS Safety Report 7141427-7 (Version None)
Quarter: 2010Q4

REPORT INFORMATION
  Report Type: 
  Country: None (occurrence: None)
  Receive Date: 20101207
  Receipt Date: 20101201
  Transmission Date: 20110411
  Serious: Yes (Other)
  Sender: FDA-Public Use
  Company Number: GB-TEVA-252943ISR

PATIENT
  Age: 29 Year
  Sex: Female

DRUGS (4)
  1. DIAZEPAM [Suspect]
  2. ARIPIPRAZOLE [Suspect]
     Indication: BIPOLAR DISORDER
     Route: 048
  3. CLOZAPINE [Suspect]
     Indication: BIPOLAR DISORDER
     Route: 048
     Dates: start: 20100729
  4. CLOZAPINE [Suspect]

REACTIONS (3)
  - FALL [None]
  - MYOCLONUS [None]
  - URINARY INCONTINENCE [None]
